FAERS Safety Report 17201487 (Version 1)
Quarter: 2020Q1

REPORT INFORMATION
  Report Type: Spontaneous
  Country: US (occurrence: US)
  Receive Date: 20191224
  Receipt Date: 20191224
  Transmission Date: 20200409
  Serious: Yes (Hospitalization)
  Sender: FDA-Public Use
  Company Number: None

PATIENT
  Age: 74 Year
  Sex: Female
  Weight: 48.15 kg

DRUGS (10)
  1. SODIUM BICARBONATE. [Concomitant]
     Active Substance: SODIUM BICARBONATE
  2. ANASTRAZOLE [Concomitant]
     Active Substance: ANASTROZOLE
  3. ALLOPURINOL. [Concomitant]
     Active Substance: ALLOPURINOL
  4. LASIX [Concomitant]
     Active Substance: FUROSEMIDE
  5. VALSARTAN. [Concomitant]
     Active Substance: VALSARTAN
  6. PILOCARPINE. [Concomitant]
     Active Substance: PILOCARPINE
  7. LATANOPROST-TIMOLOL [Concomitant]
  8. LIPITOR [Concomitant]
     Active Substance: ATORVASTATIN CALCIUM
  9. VERZENIO [Suspect]
     Active Substance: ABEMACICLIB
     Indication: BREAST CANCER
     Route: 048
     Dates: start: 20191122, end: 20191206
  10. GLIPIZIDE. [Concomitant]
     Active Substance: GLIPIZIDE

REACTIONS (1)
  - Diarrhoea [None]

NARRATIVE: CASE EVENT DATE: 20191205
